FAERS Safety Report 8389937-9 (Version None)
Quarter: 2012Q2

REPORT INFORMATION
  Report Type: 
  Country: None (occurrence: None)
  Receive Date: 20120516
  Receipt Date: 20120509
  Transmission Date: 20120825
  Serious: Yes (Other)
  Sender: FDA-Public Use
  Company Number: DSA_55868_2012

PATIENT
  Sex: Male
  Weight: 78.5 kg

DRUGS (2)
  1. XENAZINE [Suspect]
     Indication: CHOREA
     Dosage: 12.5 MG, TID ORAL,
     Route: 048
     Dates: start: 20120221
  2. XENAZINE [Suspect]
     Indication: CHOREA
     Dosage: 12.5 MG, TID ORAL,
     Route: 048
     Dates: start: 20100510, end: 20120201

REACTIONS (1)
  - OSTEONECROSIS [None]
